FAERS Safety Report 4895556-9 (Version None)
Quarter: 2006Q1

REPORT INFORMATION
  Report Type: 
  Country: None (occurrence: None)
  Receive Date: 20060125
  Receipt Date: 20040610
  Transmission Date: 20060701
  Serious: Yes (Hospitalization)
  Sender: FDA-Public Use
  Company Number: FR_040403938

PATIENT
  Age: 77 Year
  Sex: Female

DRUGS (10)
  1. VANCOMYCIN [Suspect]
     Dates: start: 20040212, end: 20040228
  2. FUROSEMIDE [Concomitant]
  3. OMEPRAZOLE [Concomitant]
  4. FORADIL [Concomitant]
  5. OFLOXACIN [Concomitant]
  6. CORDARONE [Concomitant]
  7. CALCIPARINE [Concomitant]
  8. CALCIDIA (CALCIUM CARBONATE) [Concomitant]
  9. EUPRESSYL (URAPIDIL) [Concomitant]
  10. RENAGEL (SEVERLAMER HYDROCHLORIDE) [Concomitant]

REACTIONS (4)
  - DERMATITIS EXFOLIATIVE [None]
  - GENERALISED OEDEMA [None]
  - RASH ERYTHEMATOUS [None]
  - RASH MACULO-PAPULAR [None]
